FAERS Safety Report 17184148 (Version 1)
Quarter: 2019Q4

REPORT INFORMATION
  Report Type: Spontaneous
  Country: US (occurrence: US)
  Receive Date: 20191220
  Receipt Date: 20191220
  Transmission Date: 20200122
  Serious: No
  Sender: FDA-Public Use
  Company Number: US-RECKITT BENCKISER HEALTHCARE INT LIMITED-RB-80770-2019

PATIENT
  Age: 84 Year
  Sex: Male

DRUGS (2)
  1. AZITHROMYCIN ANHYDROUS. [Suspect]
     Active Substance: AZITHROMYCIN ANHYDROUS
     Indication: PRODUCT USED FOR UNKNOWN INDICATION
     Dosage: 2 TABLET (BEFORE GOING TO THE BED)
     Route: 065
     Dates: start: 20190111
  2. DELSYM [Suspect]
     Active Substance: DEXTROMETHORPHAN
     Indication: PRODUCT USED FOR UNKNOWN INDICATION
     Dosage: 10 MILLILITER, BID
     Route: 065
     Dates: start: 20190111

REACTIONS (8)
  - Pruritus [Not Recovered/Not Resolved]
  - Dysuria [Recovering/Resolving]
  - Penile swelling [Unknown]
  - Penile erythema [Unknown]
  - Skin exfoliation [Recovered/Resolved]
  - Peripheral swelling [Recovering/Resolving]
  - Rash macular [Not Recovered/Not Resolved]
  - Erythema [Not Recovered/Not Resolved]

NARRATIVE: CASE EVENT DATE: 20190112
